FAERS Safety Report 5278224-3 (Version None)
Quarter: 2007Q1

REPORT INFORMATION
  Report Type: 
  Country: None (occurrence: None)
  Receive Date: 20070328
  Receipt Date: 20070323
  Transmission Date: 20070707
  Serious: Yes (Death)
  Sender: FDA-Public Use
  Company Number: CA-ELI_LILLY_AND_COMPANY-CA200703005111

PATIENT
  Age: 40 Year

DRUGS (2)
  1. ZYPREXA [Suspect]
  2. CLOZARIL [Concomitant]

REACTIONS (1)
  - DEATH [None]
